FAERS Safety Report 8474526 (Version 5)
Quarter: 2014Q2

REPORT INFORMATION
  Report Type: Spontaneous
  Country: PT (occurrence: PT)
  Receive Date: 20120323
  Receipt Date: 20140424
  Transmission Date: 20141212
  Serious: Yes (Hospitalization, Other)
  Sender: FDA-Public Use
  Company Number: PHHY2012PT002616

PATIENT
  Sex: Female

DRUGS (4)
  1. RASILEZ [Suspect]
     Dosage: UNK UKN, UNK
     Route: 064
  2. SIMVASTATIN SANDOZ [Suspect]
     Dosage: UNK UKN, UNK
     Route: 064
  3. INSULIN [Concomitant]
     Dosage: UNK UKN, UNK
     Route: 064
  4. YASMIN [Concomitant]
     Dosage: UNK UKN, UNK
     Route: 064

REACTIONS (6)
  - Neonatal respiratory distress syndrome [Recovering/Resolving]
  - Ventricular septal defect [Recovering/Resolving]
  - Premature baby [Unknown]
  - Low birth weight baby [Unknown]
  - Foetal growth restriction [Unknown]
  - Foetal exposure during pregnancy [Unknown]
